FAERS Safety Report 23816201 (Version 3)
Quarter: 2024Q2

REPORT INFORMATION
  Report Type: Spontaneous
  Country: BR (occurrence: BR)
  Receive Date: 20240503
  Receipt Date: 20240517
  Transmission Date: 20240716
  Serious: Yes (Other)
  Sender: FDA-Public Use
  Company Number: BR-ELI_LILLY_AND_COMPANY-BR202404019041

PATIENT
  Sex: Male

DRUGS (2)
  1. HUMALOG [Suspect]
     Active Substance: INSULIN LISPRO
     Indication: Diabetes mellitus
     Dosage: 4 INTERNATIONAL UNIT, OTHER (BEFORE LUNCH, BUT SUITABLE FOR MEALS)
     Route: 058
  2. HUMALOG [Suspect]
     Active Substance: INSULIN LISPRO
     Indication: Diabetes mellitus
     Dosage: 4 INTERNATIONAL UNIT, OTHER (BEFORE LUNCH, BUT SUITABLE FOR MEALS)
     Route: 058

REACTIONS (3)
  - Retinal detachment [Unknown]
  - Cataract diabetic [Unknown]
  - Product storage error [Unknown]
